FAERS Safety Report 7954085-6 (Version None)
Quarter: 2011Q4

REPORT INFORMATION
  Report Type: 
  Country: None (occurrence: None)
  Receive Date: 20111202
  Receipt Date: 20111123
  Transmission Date: 20120403
  Serious: Yes (Hospitalization, Other)
  Sender: FDA-Public Use
  Company Number: US-BAYER-2011-072061

PATIENT
  Age: 32 Year
  Sex: Female
  Weight: 86 kg

DRUGS (2)
  1. YAZ [Suspect]
     Indication: ACNE
     Dosage: UNK
     Dates: start: 20100601, end: 20101208
  2. YAZ [Suspect]
     Indication: DYSMENORRHOEA

REACTIONS (10)
  - INJURY [None]
  - PAIN [None]
  - QUALITY OF LIFE DECREASED [None]
  - MOBILITY DECREASED [None]
  - DEEP VEIN THROMBOSIS [None]
  - PULMONARY EMBOLISM [None]
  - SPEECH DISORDER [None]
  - CEREBRAL INFARCTION [None]
  - CEREBROVASCULAR ACCIDENT [None]
  - MEMORY IMPAIRMENT [None]
